FAERS Safety Report 9021993 (Version 1)
Quarter: 2013Q1

REPORT INFORMATION
  Report Type: Spontaneous
  Country: US (occurrence: US)
  Receive Date: 20130118
  Receipt Date: 20130118
  Transmission Date: 20140127
  Serious: Yes (Hospitalization, Other)
  Sender: FDA-Public Use
  Company Number: US-SANOFI-AVENTIS-2012SA019199

PATIENT
  Age: 59 Year
  Sex: Male

DRUGS (25)
  1. FUROSEMIDE [Suspect]
  2. TORASEMIDE [Suspect]
  3. SPIRONOLACTONE [Suspect]
  4. CARVEDILOL [Suspect]
  5. BLINDED THERAPY [Suspect]
     Indication: TYPE 2 DIABETES MELLITUS
     Dates: start: 20110325
  6. ASPIRIN [Concomitant]
  7. SODIUM CHLORIDE [Concomitant]
     Dates: start: 20110504, end: 20110509
  8. ALL OTHER THERAPEUTIC PRODUCTS [Concomitant]
     Dates: start: 20110504, end: 20110509
  9. SODIUM BICARBONATE [Concomitant]
     Dates: start: 20110504, end: 20110509
  10. CLONAZEPAM [Concomitant]
     Dates: start: 20110504, end: 20110509
  11. OMEGA 3 [Concomitant]
     Dates: start: 20110504, end: 20110509
  12. LISINOPRIL [Concomitant]
     Dates: start: 20110504, end: 20110509
  13. CLONIDINE [Concomitant]
     Dates: start: 20110504, end: 20110509
  14. PANTOPRAZOLE SODIUM [Concomitant]
     Dates: start: 20110504, end: 20110509
  15. ACETAMINOPHEN [Concomitant]
     Dates: start: 20110504, end: 20110509
  16. SALBUTAMOL [Concomitant]
     Dates: start: 20110504, end: 20110509
  17. SALBUTAMOL W/IPRATROPIUM [Concomitant]
     Dates: start: 20110505, end: 20110509
  18. ISOSORBIDE DINITRATE [Concomitant]
     Dates: start: 20110505, end: 20110509
  19. GLYCERYL TRINITRATE [Concomitant]
     Dates: start: 20110505, end: 20110509
  20. CLOPIDOGREL BISULFATE [Concomitant]
     Dates: start: 20110505, end: 20110509
  21. SPIRONOLACTONE [Concomitant]
     Dates: start: 20110505, end: 20110509
  22. ACETAMINOPHEN W/HYDROCODONE [Concomitant]
     Dates: start: 20110505, end: 20110509
  23. CALCIUM/MAGNESIUM [Concomitant]
     Dates: start: 20110505, end: 20110509
  24. WARFARIN SODIUM [Concomitant]
     Dates: start: 20110505
  25. AMLODIPINE BESILATE [Concomitant]
     Dates: start: 20110507, end: 20110509

REACTIONS (2)
  - Renal failure acute [Recovered/Resolved]
  - Hypotension [Recovered/Resolved]
